FAERS Safety Report 23789013 (Version 3)
Quarter: 2024Q2

REPORT INFORMATION
  Report Type: Spontaneous
  Country: US (occurrence: US)
  Receive Date: 20240426
  Receipt Date: 20240617
  Transmission Date: 20240716
  Serious: Yes (Hospitalization, Other)
  Sender: FDA-Public Use
  Company Number: US-BAXTER-2024BAX017028

PATIENT
  Sex: Female

DRUGS (9)
  1. ARTISS [Suspect]
     Active Substance: FIBRINOGEN HUMAN\THROMBIN HUMAN
     Indication: Nasal septal operation
     Dosage: 1 ML
     Route: 065
     Dates: start: 20230421, end: 20230421
  2. ARTISS [Suspect]
     Active Substance: FIBRINOGEN HUMAN\THROMBIN HUMAN
     Indication: Nasal septal operation
     Dosage: 1 ML
     Route: 065
     Dates: start: 20230421, end: 20230421
  3. ARTISS [Suspect]
     Active Substance: FIBRINOGEN HUMAN\THROMBIN HUMAN
     Indication: Tissue sealing
     Dosage: 3 ML
     Route: 065
     Dates: start: 20230823, end: 20230823
  4. ARTISS [Suspect]
     Active Substance: FIBRINOGEN HUMAN\THROMBIN HUMAN
     Indication: Tissue sealing
     Dosage: 3 ML
     Route: 065
     Dates: start: 20230823, end: 20230823
  5. KENALOG [Suspect]
     Active Substance: TRIAMCINOLONE ACETONIDE
     Indication: Nose deformity
     Dosage: (STEROID INJECTION)
     Route: 065
     Dates: start: 202305, end: 202305
  6. KENALOG [Suspect]
     Active Substance: TRIAMCINOLONE ACETONIDE
     Dosage: (STEROID INJECTION)
     Route: 065
     Dates: start: 202306, end: 202306
  7. COLCHICINE [Suspect]
     Active Substance: COLCHICINE
     Indication: Granuloma
     Dosage: UNK
     Route: 065
     Dates: start: 202405
  8. LEVAQUIN [Suspect]
     Active Substance: LEVOFLOXACIN
     Indication: Serratia infection
     Dosage: UNK
     Route: 048
     Dates: start: 20230903, end: 202310
  9. PREDNISONE [Suspect]
     Active Substance: PREDNISONE
     Indication: Serratia infection
     Dosage: UNK
     Route: 048
     Dates: start: 20230903

REACTIONS (7)
  - Postoperative wound infection [Not Recovered/Not Resolved]
  - Serratia infection [Not Recovered/Not Resolved]
  - Nose deformity [Recovering/Resolving]
  - Nasal abscess [Recovered/Resolved]
  - Granuloma [Unknown]
  - Urticaria [Recovered/Resolved]
  - Anaphylactic reaction [Recovered/Resolved]
